FAERS Safety Report 22086937 (Version 1)
Quarter: 2023Q1

REPORT INFORMATION
  Report Type: Spontaneous
  Country: GB (occurrence: GB)
  Receive Date: 20230312
  Receipt Date: 20230312
  Transmission Date: 20230417
  Serious: Yes (Other)
  Sender: FDA-Public Use
  Company Number: GB-ABBVIE-4325307

PATIENT

DRUGS (3)
  1. STELARA [Suspect]
     Active Substance: USTEKINUMAB
     Indication: Crohn^s disease
     Route: 058
     Dates: start: 2020
  2. VEDOLIZUMAB [Suspect]
     Active Substance: VEDOLIZUMAB
     Indication: Crohn^s disease
     Route: 065
  3. ADALIMUMAB [Suspect]
     Active Substance: ADALIMUMAB
     Indication: Crohn^s disease
     Route: 050

REACTIONS (8)
  - Diarrhoea haemorrhagic [Not Recovered/Not Resolved]
  - Proctitis [Not Recovered/Not Resolved]
  - Myopathy [Unknown]
  - Therapeutic product effect decreased [Unknown]
  - Anal fistula [Not Recovered/Not Resolved]
  - Therapeutic product effect decreased [Unknown]
  - Enteritis [Not Recovered/Not Resolved]
  - Therapeutic product effect incomplete [Unknown]
